FAERS Safety Report 25225126 (Version 1)
Quarter: 2025Q2

REPORT INFORMATION
  Report Type: Spontaneous
  Country: US (occurrence: US)
  Receive Date: 20250422
  Receipt Date: 20250422
  Transmission Date: 20250717
  Serious: Yes (Death, Other)
  Sender: WAYLIS THERAPEUTICS LLC
  Company Number: US-WT-2025-SA010133

PATIENT
  Age: 96 Year
  Sex: Female

DRUGS (11)
  1. LUNESTA [Suspect]
     Active Substance: ESZOPICLONE
     Route: 065
     Dates: start: 2023
  2. AMBIEN [Suspect]
     Active Substance: ZOLPIDEM TARTRATE
     Route: 004
     Dates: start: 2023
  3. METHOCARBAMOL [Suspect]
     Active Substance: METHOCARBAMOL
     Route: 065
     Dates: start: 2023
  4. XANAX [Suspect]
     Active Substance: ALPRAZOLAM
     Route: 065
     Dates: start: 2023
  5. MELATONIN [Suspect]
     Active Substance: MELATONIN
     Route: 065
     Dates: start: 2023
  6. VALIUM [Suspect]
     Active Substance: DIAZEPAM
     Route: 065
     Dates: start: 2023
  7. SONATA [Suspect]
     Active Substance: ZALEPLON
     Route: 065
     Dates: start: 2023
  8. RESTORIL [Suspect]
     Active Substance: TEMAZEPAM
     Route: 065
     Dates: start: 2023
  9. ROZEREM [Suspect]
     Active Substance: RAMELTEON
     Route: 065
     Dates: start: 2023
  10. ATIVAN [Suspect]
     Active Substance: LORAZEPAM
     Route: 065
     Dates: start: 2023
  11. DIPHENHYDRAMINE [Suspect]
     Active Substance: DIPHENHYDRAMINE
     Route: 065
     Dates: start: 2023

REACTIONS (2)
  - Cardiac arrest [Fatal]
  - Product prescribing error [Unknown]

NARRATIVE: CASE EVENT DATE: 20231029
